FAERS Safety Report 8422730-7 (Version None)
Quarter: 2012Q2

REPORT INFORMATION
  Report Type: 
  Country: None (occurrence: None)
  Receive Date: 20120608
  Receipt Date: 20120601
  Transmission Date: 20120825
  Serious: Yes (Other)
  Sender: FDA-Public Use
  Company Number: US-JNJFOC-20120601772

PATIENT
  Sex: Male

DRUGS (1)
  1. NEUTROGENA T/GEL THERAPEUTIC SHAMPOO [Suspect]
     Indication: DANDRUFF
     Route: 061
     Dates: end: 20120601

REACTIONS (3)
  - PRURITUS [None]
  - DRY SKIN [None]
  - PSORIASIS [None]
